FAERS Safety Report 7730175-8 (Version None)
Quarter: 2011Q3

REPORT INFORMATION
  Report Type: 
  Country: None (occurrence: None)
  Receive Date: 20110906
  Receipt Date: 20110831
  Transmission Date: 20111222
  Serious: Yes (Hospitalization)
  Sender: FDA-Public Use
  Company Number: PHHY2011DE51067

PATIENT
  Sex: Female
  Weight: 88 kg

DRUGS (5)
  1. FEMARA [Suspect]
     Indication: BREAST CANCER
     Dosage: 2.5 MG, UNK
     Route: 048
     Dates: start: 20100605, end: 20110607
  2. ZOMETA [Concomitant]
     Dosage: 4 MG PER 5 ML
     Route: 042
     Dates: start: 20100813, end: 20110314
  3. PANTOPRAZOLE [Concomitant]
     Dosage: 20 MG, PER DAY
     Route: 048
     Dates: start: 20110103, end: 20110607
  4. OMEPRAZOLE [Concomitant]
     Dosage: 40 MG, PER DAY
     Route: 048
     Dates: start: 20110607
  5. FERROUS SULFATE TAB [Concomitant]
     Dosage: 100 MG, BID
     Route: 048
     Dates: start: 20110103

REACTIONS (3)
  - SKIN DEPIGMENTATION [None]
  - ERYTHEMA [None]
  - ORTHOPOX VIRUS INFECTION [None]
